FAERS Safety Report 6154475-0 (Version None)
Quarter: 2009Q2

REPORT INFORMATION
  Report Type: 
  Country: None (occurrence: None)
  Receive Date: 20090414
  Receipt Date: 20090401
  Transmission Date: 20091009
  Serious: Yes (Hospitalization)
  Sender: FDA-Public Use
  Company Number: AU-CELGENEUS-008-C5013-07091457

PATIENT
  Sex: Male
  Weight: 94 kg

DRUGS (8)
  1. CC-5013 [Suspect]
     Indication: MULTIPLE MYELOMA
     Route: 048
     Dates: start: 20070425, end: 20070927
  2. CC-5013 [Suspect]
     Route: 048
     Dates: start: 20070928
  3. DEXAMETHASONE 4MG TAB [Suspect]
     Indication: MULTIPLE MYELOMA
     Route: 048
     Dates: start: 20070425
  4. BONEFOS [Concomitant]
     Indication: MULTIPLE MYELOMA
     Route: 048
  5. LIPITOR [Concomitant]
     Route: 048
  6. MAGMIN [Concomitant]
     Indication: PROPHYLAXIS
     Route: 048
  7. SLOW-K [Concomitant]
     Indication: PROPHYLAXIS
     Route: 048
  8. LASIX [Concomitant]
     Indication: PROPHYLAXIS
     Route: 048

REACTIONS (1)
  - MUSCULOSKELETAL CHEST PAIN [None]
